FAERS Safety Report 8896349 (Version 1)
Quarter: 2012Q4

REPORT INFORMATION
  Report Type: Spontaneous
  Country: US (occurrence: None)
  Receive Date: 20121107
  Receipt Date: 20121107
  Transmission Date: 20130627
  Serious: Yes (Other)
  Sender: FDA-Public Use
  Company Number: None

PATIENT
  Sex: Female
  Weight: 74.84 kg

DRUGS (1)
  1. PRAMIPEXOLE [Suspect]
     Indication: RESTLESS LEG SYNDROME
     Dosage: .25 mg. 4 times day
     Dates: start: 20120823, end: 20121009

REACTIONS (1)
  - Cough [None]
